FAERS Safety Report 7465261-3 (Version None)
Quarter: 2011Q2

REPORT INFORMATION
  Report Type: 
  Country: None (occurrence: None)
  Receive Date: 20110509
  Receipt Date: 20110427
  Transmission Date: 20111010
  Serious: Yes (Other)
  Sender: FDA-Public Use
  Company Number: PHHY2011ES36210

PATIENT
  Age: 60 Year
  Sex: Female

DRUGS (2)
  1. AREDIA [Suspect]
     Indication: MULTIPLE MYELOMA
     Dosage: 90 MG, UNK
     Route: 042
     Dates: start: 20020101, end: 20090601
  2. ACTONEL [Suspect]
     Indication: SPINAL COMPRESSION FRACTURE
     Dosage: 35 MG, UNK
     Route: 048
     Dates: end: 20080415

REACTIONS (1)
  - OSTEONECROSIS OF JAW [None]
